FAERS Safety Report 21620439 (Version 1)
Quarter: 2022Q4

REPORT INFORMATION
  Report Type: Spontaneous
  Country: CN (occurrence: CN)
  Receive Date: 20221121
  Receipt Date: 20221121
  Transmission Date: 20230113
  Serious: Yes (Other)
  Sender: FDA-Public Use
  Company Number: CN-Accord-277198

PATIENT
  Age: 50 Year
  Sex: Male

DRUGS (4)
  1. CISPLATIN [Suspect]
     Active Substance: CISPLATIN
     Indication: Nasopharyngeal cancer stage IV
     Dosage: ON DAY 1 FOR 1 CYCLE
     Dates: start: 202105, end: 202107
  2. TISLELIZUMAB [Suspect]
     Active Substance: TISLELIZUMAB
     Indication: Nasopharyngeal cancer stage IV
     Dosage: ON DAY 1 FOR 1 CYCLE
     Dates: start: 202105, end: 202107
  3. CISPLATIN [Suspect]
     Active Substance: CISPLATIN
     Indication: Metastases to liver
     Dates: start: 202105, end: 202107
  4. TISLELIZUMAB [Suspect]
     Active Substance: TISLELIZUMAB
     Indication: Metastases to liver
     Dates: start: 202105, end: 202107

REACTIONS (3)
  - Myelosuppression [Recovered/Resolved]
  - Oral disorder [Recovered/Resolved]
  - Gastrointestinal disorder [Recovered/Resolved]

NARRATIVE: CASE EVENT DATE: 20210101
